FAERS Safety Report 7100711-3 (Version None)
Quarter: 2010Q4

REPORT INFORMATION
  Report Type: 
  Country: None (occurrence: None)
  Receive Date: 20101113
  Receipt Date: 20100319
  Transmission Date: 20110411
  Serious: No
  Sender: FDA-Public Use
  Company Number: US-ALLERGAN-1002759US

PATIENT
  Age: 37 Year
  Sex: Female

DRUGS (3)
  1. BOTOX COSMETIC [Suspect]
     Indication: SKIN WRINKLING
     Dosage: UNK
     Route: 030
     Dates: start: 20100225, end: 20100225
  2. JUVEDERM [Suspect]
     Indication: SKIN WRINKLING
  3. RADIESSE [Suspect]
     Indication: SKIN WRINKLING

REACTIONS (4)
  - ACNE [None]
  - ERYTHEMA [None]
  - PRURITUS [None]
  - SKIN DISCOLOURATION [None]
